FAERS Safety Report 7744730-2 (Version None)
Quarter: 2011Q3

REPORT INFORMATION
  Report Type: 
  Country: None (occurrence: None)
  Receive Date: 20110912
  Receipt Date: 20101208
  Transmission Date: 20111222
  Serious: No
  Sender: FDA-Public Use
  Company Number: US-BAYER-201038212NA

PATIENT
  Age: 38 Year
  Sex: Female

DRUGS (3)
  1. ULTRAVIST 300 [Suspect]
     Indication: COMPUTERISED TOMOGRAM
  2. ULTRAVIST 300 [Suspect]
     Indication: COMPUTERISED TOMOGRAM HEAD
  3. ULTRAVIST 300 [Suspect]
     Indication: NECK MASS
     Dosage: RIGHT ANTECUBITAL
     Dates: start: 20101021, end: 20101021

REACTIONS (1)
  - VOMITING [None]
